FAERS Safety Report 4923340-6 (Version None)
Quarter: 2006Q1

REPORT INFORMATION
  Report Type: 
  Country: None (occurrence: None)
  Receive Date: 20060222
  Receipt Date: 20060222
  Transmission Date: 20060701
  Serious: No
  Sender: FDA-Public Use
  Company Number: None

PATIENT

DRUGS (1)
  1. FLOLAN [Suspect]
     Dosage: INJECTABLE

REACTIONS (4)
  - DEVICE MALFUNCTION [None]
  - DYSPNOEA [None]
  - INCORRECT DRUG ADMINISTRATION RATE [None]
  - OVERDOSE [None]
